FAERS Safety Report 11365202 (Version 5)
Quarter: 2016Q4

REPORT INFORMATION
  Report Type: Spontaneous
  Country: US (occurrence: US)
  Receive Date: 20150811
  Receipt Date: 20161208
  Transmission Date: 20170206
  Serious: Yes (Hospitalization)
  Sender: FDA-Public Use
  Company Number: US-ACTELION-A-US2015-120376

PATIENT
  Age: 78 Year
  Sex: Female

DRUGS (2)
  1. TRACLEER [Suspect]
     Active Substance: BOSENTAN
     Indication: PULMONARY ARTERIAL HYPERTENSION
     Dosage: 125 MG, BID
     Route: 048
     Dates: start: 20090611
  2. ZITHROMAX [Concomitant]
     Active Substance: AZITHROMYCIN DIHYDRATE

REACTIONS (14)
  - Vomiting [Unknown]
  - Chest pain [Unknown]
  - Bronchitis [Unknown]
  - Pneumonia [Unknown]
  - Rash [Unknown]
  - Syncope [Unknown]
  - Dyspnoea [Unknown]
  - Rash pruritic [Unknown]
  - Pyrexia [Unknown]
  - Drug hypersensitivity [Unknown]
  - Hypotension [Unknown]
  - Cough [Unknown]
  - Fungal infection [Unknown]
  - Insomnia [Unknown]

NARRATIVE: CASE EVENT DATE: 201611
